FAERS Safety Report 8533142-X (Version None)
Quarter: 2012Q3

REPORT INFORMATION
  Report Type: 
  Country: None (occurrence: None)
  Receive Date: 20120724
  Receipt Date: 20120712
  Transmission Date: 20120928
  Serious: Yes (Other)
  Sender: FDA-Public Use
  Company Number: US-BRISTOL-MYERS SQUIBB COMPANY-16766313

PATIENT
  Age: 62 Year
  Sex: Male

DRUGS (2)
  1. LOVENOX [Suspect]
     Indication: THROMBOSIS
     Route: 058
  2. COUMADIN [Suspect]

REACTIONS (4)
  - INJECTION SITE HAEMORRHAGE [None]
  - IMPAIRED HEALING [None]
  - THROMBOSIS [None]
  - INJECTION SITE HAEMATOMA [None]
